FAERS Safety Report 7557204-9 (Version None)
Quarter: 2011Q2

REPORT INFORMATION
  Report Type: 
  Country: None (occurrence: None)
  Receive Date: 20110620
  Receipt Date: 20100708
  Transmission Date: 20111010
  Serious: No
  Sender: FDA-Public Use
  Company Number: US-MYLANLABS-2010S1011009

PATIENT
  Age: 71 Year
  Sex: Female
  Weight: 52.62 kg

DRUGS (13)
  1. PERFOROMIST [Suspect]
     Indication: CHRONIC OBSTRUCTIVE PULMONARY DISEASE
     Route: 055
     Dates: start: 20080101
  2. PERFOROMIST [Suspect]
     Indication: ASTHMA
     Route: 055
     Dates: start: 20080101
  3. DIGOXIN [Concomitant]
     Dates: start: 20030101
  4. CARDIZEM [Concomitant]
     Dates: start: 20030101
  5. CLARITIN /00917501/ [Concomitant]
     Dates: start: 20030101
  6. PERFOROMIST [Suspect]
     Route: 055
     Dates: start: 20080101
  7. LEVOFLOXACIN [Concomitant]
  8. TICLOPIDINE HCL [Concomitant]
  9. CLORAZEPATE DIPOTASSIUM [Concomitant]
  10. ASPIRIN [Concomitant]
     Dates: end: 20090403
  11. PERFOROMIST [Suspect]
     Route: 055
     Dates: start: 20080101
  12. ANTITHROMBOTIC AGENTS [Concomitant]
     Dates: start: 20030101
  13. ATORVASTATIN [Concomitant]

REACTIONS (3)
  - CHRONIC OBSTRUCTIVE PULMONARY DISEASE [None]
  - DRUG INEFFECTIVE [None]
  - SOMNOLENCE [None]
